FAERS Safety Report 14620246 (Version 1)
Quarter: 2018Q1

REPORT INFORMATION
  Report Type: Spontaneous
  Country: ES (occurrence: ES)
  Receive Date: 20180309
  Receipt Date: 20180309
  Transmission Date: 20180509
  Serious: Yes (Other)
  Sender: FDA-Public Use
  Company Number: ES-SA-2018SA059596

PATIENT
  Age: 68 Year
  Sex: Male

DRUGS (1)
  1. COAPROVEL [Suspect]
     Active Substance: HYDROCHLOROTHIAZIDE\IRBESARTAN
     Indication: HYPERTENSION
     Route: 048
     Dates: start: 20180205, end: 20180219

REACTIONS (1)
  - Atopy [Recovering/Resolving]

NARRATIVE: CASE EVENT DATE: 20180208
